FAERS Safety Report 6693206-2 (Version None)
Quarter: 2010Q2

REPORT INFORMATION
  Report Type: 
  Country: None (occurrence: None)
  Receive Date: 20100421
  Receipt Date: 20100421
  Transmission Date: 20101027
  Serious: Yes (Life-Threatening, Hospitalization, Other)
  Sender: FDA-Public Use
  Company Number: None

PATIENT
  Age: 59 Year
  Sex: Male
  Weight: 96.1626 kg

DRUGS (1)
  1. PACERONE [Suspect]
     Indication: HYPERTHYROIDISM
     Dosage: 200MG DAILY PO
     Route: 048
     Dates: start: 20070901, end: 20081201

REACTIONS (3)
  - ECONOMIC PROBLEM [None]
  - HYPERTHYROIDISM [None]
  - THYROID CANCER [None]
